FAERS Safety Report 8112269-0 (Version None)
Quarter: 2012Q1

REPORT INFORMATION
  Report Type: 
  Country: None (occurrence: None)
  Receive Date: 20120203
  Receipt Date: 20120131
  Transmission Date: 20120608
  Serious: Yes (Other)
  Sender: FDA-Public Use
  Company Number: US-PFIZER INC-2012026964

PATIENT
  Sex: Female
  Weight: 74.83 kg

DRUGS (4)
  1. TRAMADOL [Concomitant]
     Indication: OSTEOARTHRITIS
     Dosage: UNK
  2. VITAMIN B COMPLEX CAP [Concomitant]
     Dosage: UNK
  3. CELEBREX [Suspect]
     Indication: OSTEOARTHRITIS
     Dosage: 200 MG, 1X/DAY
     Route: 048
     Dates: start: 20040101
  4. NEXIUM [Concomitant]
     Indication: GASTROOESOPHAGEAL REFLUX DISEASE
     Dosage: UNK

REACTIONS (1)
  - KNEE ARTHROPLASTY [None]
